FAERS Safety Report 9169085 (Version 1)
Quarter: 2013Q1

REPORT INFORMATION
  Report Type: Spontaneous
  Country: US (occurrence: US)
  Receive Date: 20130318
  Receipt Date: 20130318
  Transmission Date: 20140127
  Serious: Yes (Hospitalization)
  Sender: FDA-Public Use
  Company Number: US-GLAXOSMITHKLINE-A1015318A

PATIENT
  Age: 76 Year
  Sex: Male

DRUGS (10)
  1. VOTRIENT [Suspect]
     Indication: RENAL CANCER STAGE IV
     Dosage: 800MG PER DAY
     Route: 048
     Dates: start: 201109
  2. NORVASC [Concomitant]
  3. LOPRESSOR [Concomitant]
  4. NASONEX [Concomitant]
  5. LEXAPRO [Concomitant]
  6. CLONIDINE [Concomitant]
  7. LORAZEPAM [Concomitant]
  8. ASPIRIN [Concomitant]
  9. NAMENDA [Concomitant]
  10. BUSPAR [Concomitant]

REACTIONS (4)
  - Hypertension [Not Recovered/Not Resolved]
  - Vomiting [Not Recovered/Not Resolved]
  - Diarrhoea [Not Recovered/Not Resolved]
  - Constipation [Not Recovered/Not Resolved]
